FAERS Safety Report 4517900-4 (Version None)
Quarter: 2004Q4

REPORT INFORMATION
  Report Type: 
  Country: None (occurrence: None)
  Receive Date: 20041201
  Receipt Date: 20041201
  Transmission Date: 20050328
  Serious: Yes (Disabling, Other)
  Sender: FDA-Public Use
  Company Number: None

PATIENT
  Age: 41 Year
  Sex: Male
  Weight: 115.4404 kg

DRUGS (7)
  1. GEODON [Suspect]
     Indication: BIPOLAR I DISORDER
     Dosage: 2 BID PO
     Route: 048
     Dates: start: 20040520
  2. GEODON [Suspect]
     Indication: BIPOLAR I DISORDER
     Dosage: 2 BID PO
     Route: 048
     Dates: start: 20040924
  3. ESKALITH [Concomitant]
  4. CA LI CO3 [Concomitant]
  5. LAMICTAL [Concomitant]
  6. WELLBUTIN XL [Concomitant]
  7. METHERGINE [Concomitant]

REACTIONS (2)
  - NAUSEA [None]
  - VOMITING [None]
